FAERS Safety Report 18558930 (Version 1)
Quarter: 2020Q4

REPORT INFORMATION
  Report Type: Spontaneous
  Country: US (occurrence: US)
  Receive Date: 20201125
  Receipt Date: 20201125
  Transmission Date: 20210114
  Serious: No
  Sender: FDA-Public Use
  Company Number: None

PATIENT
  Age: 37 Year
  Sex: Female

DRUGS (1)
  1. CAPECITABINE TAB 500MG [Suspect]
     Active Substance: CAPECITABINE
     Dosage: OTHER DOSE:1500MG AM , 1000; BID ORAL?
     Route: 048
     Dates: start: 202010

REACTIONS (4)
  - Brain tumour operation [None]
  - Intracranial pressure increased [None]
  - Brain oedema [None]
  - Wound secretion [None]

NARRATIVE: CASE EVENT DATE: 20201125
